FAERS Safety Report 8443242-0 (Version None)
Quarter: 2012Q2

REPORT INFORMATION
  Report Type: 
  Country: None (occurrence: None)
  Receive Date: 20120617
  Receipt Date: 20120605
  Transmission Date: 20120825
  Serious: Yes (Other)
  Sender: FDA-Public Use
  Company Number: US-BRISTOL-MYERS SQUIBB COMPANY-16671141

PATIENT
  Age: 65 Year
  Sex: Female

DRUGS (5)
  1. LYSODREN [Suspect]
     Indication: CUSHING'S SYNDROME
  2. FUROSEMIDE [Concomitant]
     Indication: CARDIAC FAILURE
  3. ALDACTONE [Interacting]
  4. DIGOXIN [Concomitant]
     Indication: CARDIAC FAILURE
  5. CHLORPROPAMIDE [Concomitant]
     Indication: DIABETES MELLITUS

REACTIONS (4)
  - NAUSEA [None]
  - DRUG INEFFECTIVE [None]
  - DIARRHOEA [None]
  - DRUG INTERACTION [None]
